FAERS Safety Report 10255799 (Version 1)
Quarter: 2014Q2

REPORT INFORMATION
  Report Type: Spontaneous
  Country: SE (occurrence: SE)
  Receive Date: 20140624
  Receipt Date: 20140624
  Transmission Date: 20141212
  Serious: Yes (Hospitalization)
  Sender: FDA-Public Use
  Company Number: SE-ASTRAZENECA-2014SE45102

PATIENT
  Age: 47 Year
  Sex: Female

DRUGS (12)
  1. SELOKEN [Suspect]
     Route: 065
  2. QUETIAPINE [Suspect]
     Route: 048
  3. OLANZAPINE [Suspect]
     Route: 065
  4. DUROFERON [Suspect]
     Route: 065
  5. SIMVASTATIN [Suspect]
     Route: 065
  6. LEVAXIN [Suspect]
     Route: 065
  7. LAMOTRIGINE [Suspect]
     Route: 065
  8. TOPIMAX [Suspect]
     Route: 065
  9. LYRICA [Suspect]
     Route: 065
  10. CLOMIPRAMINE [Suspect]
     Route: 065
  11. XANOR [Suspect]
     Route: 065
  12. ZOPICLONE [Suspect]
     Dosage: 4-5 DAILY DOSES OF SPLIT DOSES, 300 MG UNKNOWN
     Route: 065

REACTIONS (4)
  - Depressed level of consciousness [Unknown]
  - Hypotonia [Unknown]
  - Poisoning [Unknown]
  - Oxygen saturation decreased [Unknown]
